FAERS Safety Report 13908360 (Version 1)
Quarter: 2017Q3

REPORT INFORMATION
  Report Type: Spontaneous
  Country: US (occurrence: US)
  Receive Date: 20170826
  Receipt Date: 20170826
  Transmission Date: 20171127
  Serious: Yes (Other)
  Sender: FDA-Public Use
  Company Number: US-AMGEN-USASP2017126342

PATIENT
  Age: 72 Year
  Sex: Female

DRUGS (1)
  1. ENBREL [Suspect]
     Active Substance: ETANERCEPT
     Indication: RHEUMATOID ARTHRITIS
     Dosage: 50 MG, QWK
     Route: 058
     Dates: start: 201705

REACTIONS (6)
  - Headache [Unknown]
  - Fall [Unknown]
  - Balance disorder [Unknown]
  - Dizziness [Unknown]
  - Visual impairment [Unknown]
  - Foot operation [Unknown]

NARRATIVE: CASE EVENT DATE: 2017
